FAERS Safety Report 5585471-X (Version None)
Quarter: 2008Q1

REPORT INFORMATION
  Report Type: 
  Country: None (occurrence: None)
  Receive Date: 20080104
  Receipt Date: 20080104
  Transmission Date: 20080703
  Serious: Yes (Other)
  Sender: FDA-Public Use
  Company Number: None

PATIENT
  Sex: Female
  Weight: 92.0802 kg

DRUGS (1)
  1. PEGASYS [Suspect]
     Indication: HEPATITIS C

REACTIONS (2)
  - SUICIDAL IDEATION [None]
  - VISUAL ACUITY REDUCED [None]
